FAERS Safety Report 15494085 (Version 1)
Quarter: 2018Q4

REPORT INFORMATION
  Report Type: Spontaneous
  Country: FR (occurrence: FR)
  Receive Date: 20181012
  Receipt Date: 20181012
  Transmission Date: 20190205
  Serious: Yes (Hospitalization)
  Sender: FDA-Public Use
  Company Number: FR-SA-2018SA277256

PATIENT
  Age: 70 Year
  Sex: Female
  Weight: 52 kg

DRUGS (11)
  1. IRINOTECAN [Suspect]
     Active Substance: IRINOTECAN
     Indication: PANCREATIC CARCINOMA METASTATIC
     Dosage: DOSING INTERVAL: 14 DAYS
     Route: 042
     Dates: start: 20180716, end: 20180717
  2. ELOXATIN [Suspect]
     Active Substance: OXALIPLATIN
     Indication: PANCREATIC CARCINOMA METASTATIC
     Dosage: DOSING INTERVAL: 14 DAYS
     Route: 042
     Dates: start: 20180716, end: 20180717
  3. SERESTA [Concomitant]
     Active Substance: OXAZEPAM
     Dosage: UNK UNK, UNK
     Route: 048
  4. DIFFU K [Concomitant]
     Active Substance: POTASSIUM CHLORIDE
     Dosage: UNK UNK, UNK
     Route: 048
  5. FRAXIPARINE [Concomitant]
     Active Substance: NADROPARIN CALCIUM
     Dosage: UNK, UNK
     Route: 058
  6. CALCIUM LEVOFOLINATE [Suspect]
     Active Substance: LEVOLEUCOVORIN CALCIUM
     Indication: PANCREATIC CARCINOMA METASTATIC
     Dosage: DOSING INTERVAL: 14 DAYS
     Route: 042
     Dates: start: 20180716, end: 20180717
  7. FLUOROURACILE WINTHROP [Suspect]
     Active Substance: FLUOROURACIL
     Indication: PANCREATIC CARCINOMA METASTATIC
     Dosage: 2664 MG, QD
     Route: 042
     Dates: start: 20180716, end: 20180717
  8. SERTRALINE [SERTRALINE HYDROCHLORIDE] [Concomitant]
     Dosage: UNK UNK, UNK
     Route: 048
  9. ESIDREX [Concomitant]
     Active Substance: HYDROCHLOROTHIAZIDE
     Dosage: UNK, UNK
     Route: 048
  10. PRIMPERAN [Concomitant]
     Active Substance: METOCLOPRAMIDE HYDROCHLORIDE
     Dosage: UNK UNK, UNK
     Route: 048
  11. LANSOPRAZOLE. [Concomitant]
     Active Substance: LANSOPRAZOLE
     Dosage: UNK, UNK
     Route: 048

REACTIONS (2)
  - Cholecystitis [Recovered/Resolved]
  - Sepsis [Recovered/Resolved]

NARRATIVE: CASE EVENT DATE: 20180730
